FAERS Safety Report 7381917-5 (Version None)
Quarter: 2011Q1

REPORT INFORMATION
  Report Type: 
  Country: None (occurrence: None)
  Receive Date: 20110329
  Receipt Date: 20110323
  Transmission Date: 20110831
  Serious: Yes (Death)
  Sender: FDA-Public Use
  Company Number: US-ELI_LILLY_AND_COMPANY-US201103006881

PATIENT
  Sex: Female

DRUGS (3)
  1. NEULASTA [Suspect]
     Dosage: UNK
  2. PROCRIT [Concomitant]
  3. GEMZAR [Suspect]
     Indication: CERVIX CARCINOMA
     Dosage: 1600 MG, UNK
     Dates: start: 20100830, end: 20101011

REACTIONS (1)
  - DEATH [None]
